FAERS Safety Report 5662101-X (Version None)
Quarter: 2008Q1

REPORT INFORMATION
  Report Type: 
  Country: None (occurrence: None)
  Receive Date: 20080310
  Receipt Date: 20080310
  Transmission Date: 20080703
  Serious: Yes (Hospitalization)
  Sender: FDA-Public Use
  Company Number: None

PATIENT
  Sex: Female
  Weight: 85.7 kg

DRUGS (3)
  1. CYTARABINE [Suspect]
     Dosage: 850 MG
     Dates: start: 20080214, end: 20080219
  2. DAUNORUBICIN HCL [Suspect]
     Dosage: 308 MG
     Dates: end: 20080215
  3. ETOPOSIDE [Suspect]
     Dosage: 342 MG
     Dates: end: 20080215

REACTIONS (7)
  - ACUTE RESPIRATORY FAILURE [None]
  - BONE MARROW FAILURE [None]
  - BRONCHOPULMONARY ASPERGILLOSIS [None]
  - COAGULOPATHY [None]
  - DISSEMINATED INTRAVASCULAR COAGULATION [None]
  - HYPOTENSION [None]
  - SEPSIS [None]
